FAERS Safety Report 5010411-1 (Version None)
Quarter: 2006Q2

REPORT INFORMATION
  Report Type: 
  Country: None (occurrence: None)
  Receive Date: 20060404
  Receipt Date: 20051228
  Transmission Date: 20061013
  Serious: No
  Sender: FDA-Public Use
  Company Number: US200512004297

PATIENT
  Age: 65 Year
  Sex: Female

DRUGS (7)
  1. CYMBALTA [Suspect]
     Indication: WEIGHT DECREASED
     Dosage: SEE IMAGE
     Dates: start: 20050901, end: 20051001
  2. CYMBALTA [Suspect]
     Indication: WEIGHT DECREASED
     Dosage: SEE IMAGE
     Dates: start: 20050901, end: 20051221
  3. ZESTRIL /USA/(LISINOPRIL) [Concomitant]
  4. CARDIZEM CDD (DILTIAZEM HYDROCHLORIDE) [Concomitant]
  5. AVANDIA [Concomitant]
  6. METFORMIN [Concomitant]
  7. EVISTA [Concomitant]

REACTIONS (6)
  - ANOREXIA [None]
  - BLOOD PRESSURE DECREASED [None]
  - DIZZINESS [None]
  - HYPERHIDROSIS [None]
  - SINUSITIS [None]
  - STOMACH DISCOMFORT [None]
